FAERS Safety Report 10157163 (Version 3)
Quarter: 2014Q2

REPORT INFORMATION
  Report Type: Spontaneous
  Country: US (occurrence: US)
  Receive Date: 20140507
  Receipt Date: 20140526
  Transmission Date: 20141212
  Serious: Yes (Other)
  Sender: FDA-Public Use
  Company Number: US-PFIZER INC-2014124220

PATIENT
  Age: 65 Year
  Sex: Female

DRUGS (1)
  1. ALPRAZOLAM [Suspect]
     Dosage: 1 MG, UNK

REACTIONS (10)
  - Drug dependence [Unknown]
  - Paraesthesia [Unknown]
  - Hyperhidrosis [Unknown]
  - General physical health deterioration [Unknown]
  - Insomnia [Unknown]
  - Diarrhoea [Unknown]
  - Abdominal distension [Unknown]
  - Tremor [Unknown]
  - Nightmare [Unknown]
  - Weight increased [Unknown]
